FAERS Safety Report 16669193 (Version 2)
Quarter: 2019Q3

REPORT INFORMATION
  Report Type: Report from Study
  Country: FR (occurrence: FR)
  Receive Date: 20190805
  Receipt Date: 20190820
  Transmission Date: 20191004
  Serious: Yes (Hospitalization, Other)
  Sender: FDA-Public Use
  Company Number: FR-JAZZ-2019-FR-010524

PATIENT
  Age: 58 Year
  Sex: Male
  Weight: 65 kg

DRUGS (1)
  1. DEFITELIO [Suspect]
     Active Substance: DEFIBROTIDE SODIUM
     Indication: VENOOCCLUSIVE LIVER DISEASE
     Dosage: UNKNOWN DOSE
     Route: 042
     Dates: start: 20181220, end: 20190113

REACTIONS (4)
  - Arterial haemorrhage [Recovered/Resolved]
  - Influenza [Recovered/Resolved]
  - Haematuria [Recovered/Resolved]
  - Cystitis haemorrhagic [Recovered/Resolved]

NARRATIVE: CASE EVENT DATE: 20181221
